FAERS Safety Report 19078496 (Version 1)
Quarter: 2021Q1

REPORT INFORMATION
  Report Type: Spontaneous
  Country: US (occurrence: US)
  Receive Date: 20210331
  Receipt Date: 20210331
  Transmission Date: 20210420
  Serious: No
  Sender: FDA-Public Use
  Company Number: US-JNJFOC-20210345364

PATIENT
  Age: 29 Year
  Sex: Male
  Weight: 90.8 kg

DRUGS (2)
  1. MENS ROGAINE EXTRA STRENGTH [Suspect]
     Active Substance: MINOXIDIL
     Indication: ALOPECIA
     Dosage: 1/2 CAPFUL OR A LITTLE MORE
     Route: 061
     Dates: start: 202009, end: 202012
  2. MENS ROGAINE EXTRA STRENGTH [Suspect]
     Active Substance: MINOXIDIL
     Dosage: 1/2 CAPFUL OR A LITTLE MORE
     Route: 061

REACTIONS (1)
  - Overdose [Unknown]

NARRATIVE: CASE EVENT DATE: 202009
